FAERS Safety Report 5469921-5 (Version None)
Quarter: 2007Q3

REPORT INFORMATION
  Report Type: 
  Country: None (occurrence: None)
  Receive Date: 20070927
  Receipt Date: 20070918
  Transmission Date: 20080115
  Serious: Yes (Other)
  Sender: FDA-Public Use
  Company Number: JP-ELI_LILLY_AND_COMPANY-JP200709004316

PATIENT
  Weight: 3.8 kg

DRUGS (6)
  1. HUMALOG [Suspect]
     Dosage: 10 IU, 3/D
     Route: 064
     Dates: start: 20050101
  2. HUMALOG [Suspect]
     Dosage: 12 IU, EACH MORNING
     Route: 064
  3. HUMALOG [Suspect]
     Dosage: 13 IU, DAILY (1/D)
     Route: 064
  4. HUMALOG [Suspect]
     Dosage: 15 IU, EACH EVENING
     Route: 064
  5. HUMULIN N [Suspect]
     Dosage: 18 IU, DAILY (1/D)
     Route: 064
     Dates: start: 20050101
  6. HUMULIN N [Suspect]
     Dosage: 23 IU, DAILY (1/D)
     Route: 064

REACTIONS (3)
  - DRUG EXPOSURE DURING PREGNANCY [None]
  - HYPOGLYCAEMIA NEONATAL [None]
  - NEONATAL ASPIRATION [None]
